FAERS Safety Report 15505317 (Version 2)
Quarter: 2019Q3

REPORT INFORMATION
  Report Type: Report from Study
  Country: DE (occurrence: DE)
  Receive Date: 20181016
  Receipt Date: 20190917
  Transmission Date: 20191004
  Serious: Yes (Other)
  Sender: FDA-Public Use
  Company Number: DE-BRISTOL-MYERS SQUIBB COMPANY-BMS-2018-095877

PATIENT
  Age: 83 Year
  Sex: Male
  Weight: 100 kg

DRUGS (2)
  1. APIXABAN [Suspect]
     Active Substance: APIXABAN
     Indication: DEEP VEIN THROMBOSIS
     Dosage: 10 MILLIGRAM X 1 DAILY DOSE
     Route: 048
     Dates: start: 20161018, end: 20171022
  2. ASPIRIN. [Suspect]
     Active Substance: ASPIRIN
     Indication: PRODUCT USED FOR UNKNOWN INDICATION
     Dosage: UNK
     Route: 065

REACTIONS (5)
  - Pruritus [Unknown]
  - Haemorrhage [Unknown]
  - Off label use [Unknown]
  - Transient ischaemic attack [Unknown]
  - Wound [Unknown]

NARRATIVE: CASE EVENT DATE: 20180906
